FAERS Safety Report 13114645 (Version 2)
Quarter: 2017Q1

REPORT INFORMATION
  Report Type: Spontaneous
  Country: JP (occurrence: JP)
  Receive Date: 20170113
  Receipt Date: 20170206
  Transmission Date: 20170428
  Serious: Yes (Other)
  Sender: FDA-Public Use
  Company Number: JP-REGENERON PHARMACEUTICALS, INC.-2017-10377

PATIENT

DRUGS (15)
  1. EYLEA [Suspect]
     Active Substance: AFLIBERCEPT
     Indication: DIABETIC RETINAL OEDEMA
     Dosage: 2 MG, ONCE
     Route: 031
     Dates: start: 20151124, end: 20151124
  2. EYLEA [Suspect]
     Active Substance: AFLIBERCEPT
     Dosage: 2 MG, ONCE
     Route: 031
     Dates: start: 20161025, end: 20161025
  3. CRAVIT [Concomitant]
     Active Substance: LEVOFLOXACIN
     Indication: PRODUCT USED FOR UNKNOWN INDICATION
     Dosage: UNK
     Route: 047
     Dates: start: 20161122
  4. EYLEA [Suspect]
     Active Substance: AFLIBERCEPT
     Dosage: 2 MG, ONCE
     Route: 031
     Dates: start: 20161219
  5. TIMOLOL MALEATE. [Concomitant]
     Active Substance: TIMOLOL MALEATE
     Indication: PRODUCT USED FOR UNKNOWN INDICATION
     Dosage: UNK
     Route: 047
     Dates: start: 20151224
  6. FOSMICIN S (FOSFOMYCIN SODIUM) [Suspect]
     Active Substance: FOSFOMYCIN SODIUM
     Indication: DACRYOCYSTITIS
     Dosage: 2 G DAILY DOSE
     Route: 041
     Dates: start: 20161216, end: 20161219
  7. KALLIDINOGENASE [Concomitant]
     Active Substance: KALLIDINOGENASE
     Indication: PRODUCT USED FOR UNKNOWN INDICATION
     Dosage: DAILY DOSE 150 MG
     Route: 048
     Dates: start: 20090305
  8. BRINZOLAMIDE [Concomitant]
     Active Substance: BRINZOLAMIDE
     Indication: PRODUCT USED FOR UNKNOWN INDICATION
     Dosage: UNK
     Route: 047
     Dates: start: 20151224
  9. EYLEA [Suspect]
     Active Substance: AFLIBERCEPT
     Dosage: 2 MG, ONCE
     Route: 031
     Dates: start: 20160628, end: 20160628
  10. TAFLUPROST [Concomitant]
     Active Substance: TAFLUPROST
     Indication: PRODUCT USED FOR UNKNOWN INDICATION
     Dosage: UNK
     Route: 047
     Dates: start: 20160722
  11. EYLEA [Suspect]
     Active Substance: AFLIBERCEPT
     Indication: DIABETIC RETINOPATHY
     Dosage: 2 MG, ONCE
     Route: 031
     Dates: start: 20160202, end: 20160202
  12. EYLEA [Suspect]
     Active Substance: AFLIBERCEPT
     Dosage: 2 MG, ONCE
     Route: 031
     Dates: start: 20160405, end: 20160405
  13. EYLEA [Suspect]
     Active Substance: AFLIBERCEPT
     Dosage: 2 MG, ONCE
     Route: 031
     Dates: start: 20160830, end: 20160830
  14. METHYCOBAL [Concomitant]
     Active Substance: METHYLCOBALAMIN
     Indication: PRODUCT USED FOR UNKNOWN INDICATION
     Dosage: DAILY DOSE 1500 ?G
     Route: 048
     Dates: start: 20090305
  15. EYLEA [Suspect]
     Active Substance: AFLIBERCEPT
     Indication: OEDEMA
     Dosage: 2 MG, ONCE
     Route: 031
     Dates: start: 20160301, end: 20160301

REACTIONS (1)
  - Loss of consciousness [Recovered/Resolved]

NARRATIVE: CASE EVENT DATE: 20161219
